FAERS Safety Report 7598077-8 (Version None)
Quarter: 2011Q3

REPORT INFORMATION
  Report Type: 
  Country: None (occurrence: None)
  Receive Date: 20110708
  Receipt Date: 20110706
  Transmission Date: 20111222
  Serious: No
  Sender: FDA-Public Use
  Company Number: JP-SANOFI-AVENTIS-2011SA018222

PATIENT
  Age: 73 Year
  Sex: Male
  Weight: 52.9 kg

DRUGS (9)
  1. LANTUS [Suspect]
     Indication: TYPE 2 DIABETES MELLITUS
     Route: 058
     Dates: start: 20110304, end: 20110308
  2. NOVORAPID [Concomitant]
     Dosage: 8-18 UNITS/DAY
     Route: 058
     Dates: end: 20110320
  3. URSO 250 [Concomitant]
     Indication: CHRONIC HEPATITIS
     Route: 048
     Dates: start: 20100208
  4. NOVOLIN R [Concomitant]
     Indication: TYPE 2 DIABETES MELLITUS
     Dates: start: 20110320
  5. NOVORAPID [Concomitant]
     Indication: TYPE 2 DIABETES MELLITUS
     Dosage: 8-18 UNITS/DAY
     Route: 058
     Dates: start: 20100212
  6. HUMALOG [Concomitant]
     Indication: TYPE 2 DIABETES MELLITUS
     Dates: start: 20100215, end: 20110303
  7. NOVOLIN N [Concomitant]
     Indication: TYPE 2 DIABETES MELLITUS
     Dates: start: 20110507
  8. HUMALIN [Concomitant]
     Indication: TYPE 2 DIABETES MELLITUS
     Dates: start: 20100212, end: 20100214
  9. ADALAT [Concomitant]
     Indication: HYPERTENSION
     Route: 048
     Dates: start: 20100208

REACTIONS (1)
  - HYPOGLYCAEMIA [None]
